FAERS Safety Report 7023223-4 (Version None)
Quarter: 2010Q3

REPORT INFORMATION
  Report Type: 
  Country: None (occurrence: None)
  Receive Date: 20100930
  Receipt Date: 20100922
  Transmission Date: 20110219
  Serious: Yes (Other)
  Sender: FDA-Public Use
  Company Number: US-PFIZER INC-2009257652

PATIENT
  Sex: Male
  Weight: 68.03 kg

DRUGS (6)
  1. SUTENT [Suspect]
     Indication: GASTROINTESTINAL STROMAL TUMOUR
     Dosage: 50 MG, DAILY
     Dates: start: 20090720
  2. SUTENT [Suspect]
     Dosage: 12.5 MG, 1X/DAY
     Dates: start: 20091026
  3. SUTENT [Suspect]
     Dosage: 37.5 MG, 1X/DAY
  4. VITAMIN D [Concomitant]
     Dosage: UNK
  5. RANITIDINE [Concomitant]
     Indication: GASTRIC DISORDER
     Dosage: 150 MG, DAILY
  6. OMEPRAZOLE [Concomitant]
     Indication: GASTRIC DISORDER
     Dosage: 20 MG, DAILY

REACTIONS (2)
  - CHOLELITHIASIS [None]
  - RENAL FAILURE [None]
